FAERS Safety Report 9110691 (Version 1)
Quarter: 2013Q1

REPORT INFORMATION
  Report Type: Spontaneous
  Country: US (occurrence: US)
  Receive Date: 20130219
  Receipt Date: 20130219
  Transmission Date: 20140127
  Serious: No
  Sender: FDA-Public Use
  Company Number: US-BRISTOL-MYERS SQUIBB COMPANY-16713000

PATIENT
  Age: 55 Year
  Sex: Female
  Weight: 90.7 kg

DRUGS (1)
  1. ORENCIA [Suspect]
     Indication: RHEUMATOID ARTHRITIS
     Dosage: THERAPY ON 2007-2008
     Dates: start: 2007

REACTIONS (5)
  - Lip swelling [Recovering/Resolving]
  - Infusion site erythema [Unknown]
  - Infusion site pruritus [Recovering/Resolving]
  - Scratch [Unknown]
  - Weight increased [Unknown]
